FAERS Safety Report 7281856-4 (Version None)
Quarter: 2011Q1

REPORT INFORMATION
  Report Type: 
  Country: None (occurrence: None)
  Receive Date: 20110208
  Receipt Date: 20110201
  Transmission Date: 20110831
  Serious: Yes (Hospitalization)
  Sender: FDA-Public Use
  Company Number: PHHO2010BR09819

PATIENT
  Sex: Male

DRUGS (1)
  1. AMN107 [Suspect]
     Indication: BLAST CRISIS IN MYELOGENOUS LEUKAEMIA
     Dosage: 400 MG, BID
     Route: 048
     Dates: start: 20090227

REACTIONS (4)
  - NEOPLASM MALIGNANT [None]
  - LYMPHADENOPATHY [None]
  - DRUG INEFFECTIVE [None]
  - FLANK PAIN [None]
